FAERS Safety Report 8005973-6 (Version None)
Quarter: 2011Q4

REPORT INFORMATION
  Report Type: 
  Country: None (occurrence: None)
  Receive Date: 20111224
  Receipt Date: 20111212
  Transmission Date: 20120403
  Serious: Yes (Other)
  Sender: FDA-Public Use
  Company Number: GB-BAYER-2011-100196

PATIENT
  Age: 23 Year
  Sex: Female
  Weight: 51 kg

DRUGS (3)
  1. CLOTRIMAZOLE [Suspect]
     Indication: CANDIDIASIS
     Dosage: 500 MG, UNK
     Dates: start: 20111008, end: 20110101
  2. FLUCONAZOLE [Suspect]
     Indication: VULVOVAGINAL CANDIDIASIS
     Dosage: UNK
     Dates: start: 20111008
  3. CLOTRIMAZOLE [Suspect]
     Indication: VULVOVAGINAL CANDIDIASIS
     Dosage: UNK UNK, BID
     Route: 061
     Dates: start: 20110920, end: 20111004

REACTIONS (5)
  - DYSMENORRHOEA [None]
  - ABDOMINAL PAIN [None]
  - VAGINAL DISCHARGE [None]
  - VAGINAL HAEMORRHAGE [None]
  - BACK PAIN [None]
